FAERS Safety Report 10206511 (Version 2)
Quarter: 2014Q2

REPORT INFORMATION
  Report Type: Report from Study
  Country: ES (occurrence: ES)
  Receive Date: 20140530
  Receipt Date: 20140617
  Transmission Date: 20141212
  Serious: Yes (Life-Threatening, Hospitalization)
  Sender: FDA-Public Use
  Company Number: ES-PFIZER INC-2014144871

PATIENT
  Age: 70 Year
  Sex: Female

DRUGS (6)
  1. LYRICA [Suspect]
     Dosage: 225 MG, 1X/DAY
     Route: 048
     Dates: start: 201207, end: 20130504
  2. VENLAFAXINE HCL [Interacting]
     Indication: DEPRESSION
     Dosage: 150 MG, 1X/DAY
     Route: 048
  3. ALDOCUMAR [Interacting]
     Indication: ATRIAL FIBRILLATION
     Dosage: UNK
     Route: 048
     Dates: end: 20130504
  4. DIGOXIN [Concomitant]
     Indication: ATRIAL FIBRILLATION
     Dosage: 1.25 MG, WEEKLY
     Route: 048
     Dates: start: 200606
  5. ENALAPRIL/HIDROCLOROTIAZIDA LAREQ [Concomitant]
     Indication: HYPERTENSION
     Dosage: 20 MG/ 12.5 MG 1X/DAY
     Route: 048
     Dates: start: 200904
  6. UNI MASDIL [Concomitant]
     Dosage: 200 MG, 1X/DAY
     Route: 048
     Dates: start: 201003, end: 20130504

REACTIONS (2)
  - Drug interaction [Recovered/Resolved]
  - Subdural haematoma [Recovered/Resolved]
